FAERS Safety Report 5234447-0 (Version None)
Quarter: 2007Q1

REPORT INFORMATION
  Report Type: 
  Country: None (occurrence: None)
  Receive Date: 20070209
  Receipt Date: 20070201
  Transmission Date: 20070707
  Serious: Yes (Other)
  Sender: FDA-Public Use
  Company Number: NL-GLAXOSMITHKLINE-B0440937A

PATIENT
  Age: 4 Year
  Sex: Female

DRUGS (2)
  1. FLUTICASONE PROPIONATE [Suspect]
     Dosage: 50UG TWICE PER DAY
     Route: 055
     Dates: start: 19980916
  2. KLACID [Concomitant]
     Dosage: 250MG PER DAY
     Route: 065
     Dates: start: 19980908

REACTIONS (3)
  - AGGRESSION [None]
  - ANGER [None]
  - PERSONALITY CHANGE [None]
